FAERS Safety Report 20429444 (Version 1)
Quarter: 2022Q1

REPORT INFORMATION
  Report Type: Spontaneous
  Country: US (occurrence: US)
  Receive Date: 20220204
  Receipt Date: 20220204
  Transmission Date: 20220423
  Serious: No
  Sender: FDA-Public Use
  Company Number: US-009507513-2201USA007762

PATIENT
  Sex: Male

DRUGS (3)
  1. LISINOPRIL [Suspect]
     Active Substance: LISINOPRIL
     Indication: Hypertension
     Dosage: 5 MILLIGRAM
     Route: 048
  2. LISINOPRIL [Suspect]
     Active Substance: LISINOPRIL
     Dosage: 10 MILLIGRAM
     Route: 048
  3. LISINOPRIL [Suspect]
     Active Substance: LISINOPRIL
     Dosage: 15 MILLIGRAM
     Route: 048

REACTIONS (1)
  - Drug ineffective [Unknown]
